FAERS Safety Report 7219237-1 (Version None)
Quarter: 2011Q1

REPORT INFORMATION
  Report Type: 
  Country: None (occurrence: None)
  Receive Date: 20110111
  Receipt Date: 20101228
  Transmission Date: 20110831
  Serious: Yes (Other)
  Sender: FDA-Public Use
  Company Number: US-PFIZER INC-2010180668

PATIENT
  Sex: Male
  Weight: 102.95 kg

DRUGS (4)
  1. NORVASC [Concomitant]
     Indication: HYPERTENSION
     Dosage: UNK
  2. LISINOPRIL AND HYDROCHLOROTHIAZIDE [Concomitant]
     Indication: HYPERTENSION
     Dosage: UNK
  3. LIPITOR [Concomitant]
     Indication: BLOOD CHOLESTEROL INCREASED
     Dosage: UNK
  4. LYRICA [Suspect]
     Indication: NERVE INJURY
     Dosage: 75 MG, 3X/DAY
     Route: 048
     Dates: start: 20101110

REACTIONS (3)
  - OEDEMA PERIPHERAL [None]
  - URINE OUTPUT DECREASED [None]
  - WAIST CIRCUMFERENCE INCREASED [None]
